FAERS Safety Report 18620605 (Version 1)
Quarter: 2020Q4

REPORT INFORMATION
  Report Type: Report from Study
  Country: AT (occurrence: AT)
  Receive Date: 20201215
  Receipt Date: 20201215
  Transmission Date: 20210114
  Serious: Yes (Hospitalization, Other)
  Sender: FDA-Public Use
  Company Number: AT-MYLANLABS-2020M1101523

PATIENT
  Sex: Female
  Weight: 89 kg

DRUGS (26)
  1. DEXABENE [Concomitant]
     Dosage: UNK
     Dates: start: 20181107
  2. DOCETAXEL. [Suspect]
     Active Substance: DOCETAXEL
     Indication: BREAST CANCER METASTATIC
     Dosage: 106.22 MILLIGRAM
     Route: 042
     Dates: start: 20181017
  3. PERTUZUMAB. [Suspect]
     Active Substance: PERTUZUMAB
     Dosage: 420 MILLIGRAM
     Route: 042
     Dates: start: 20180723
  4. ANASTROZOLE. [Suspect]
     Active Substance: ANASTROZOLE
     Indication: BREAST CANCER METASTATIC
     Dosage: MOST RECENT DOSE PRIOR TO AE 14/MAY/2018
     Route: 048
     Dates: start: 20170324
  5. KYTRIL [Concomitant]
     Active Substance: GRANISETRON HYDROCHLORIDE
     Dosage: ONGOING = CHECKED
     Dates: start: 20180608, end: 20181017
  6. CORTISON [Concomitant]
     Active Substance: CORTISONE ACETATE
     Dosage: ONGOING = NOT CHECKED
     Dates: start: 20180608, end: 20180608
  7. XGEVA [Concomitant]
     Active Substance: DENOSUMAB
     Dosage: UNK
     Dates: start: 20181017
  8. URBASON                            /00049601/ [Concomitant]
     Active Substance: METHYLPREDNISOLONE
     Dosage: UNK
     Dates: start: 20191210
  9. VIBRAMYCIN [Concomitant]
     Active Substance: DOXYCYCLINE
     Indication: SINUSITIS
     Dosage: ONGOING = NOT CHECKED
     Dates: start: 20180417, end: 20180615
  10. TRASTUZUMAB. [Suspect]
     Active Substance: TRASTUZUMAB
     Dosage: 438 MILLIGRAM
     Route: 042
     Dates: start: 20180926
  11. ULSAL [Concomitant]
     Active Substance: RANITIDINE HYDROCHLORIDE
     Dosage: UNK
     Dates: start: 20170414, end: 20191119
  12. TRASTUZUMAB. [Suspect]
     Active Substance: TRASTUZUMAB
     Dosage: 438 MILLIGRAM, Q3W
     Route: 041
     Dates: start: 20181017, end: 20181017
  13. FORTECORTIN                        /00016001/ [Concomitant]
     Active Substance: DEXAMETHASONE
     Dosage: ONGOING = NOT CHECKED
     Dates: start: 20180723, end: 20181017
  14. TRITAZIDE [Concomitant]
     Active Substance: HYDROCHLOROTHIAZIDE\RAMIPRIL
     Dosage: ONGOING = CHECKED
  15. ACETYLSALICYLIC ACID [Concomitant]
     Active Substance: ASPIRIN
     Indication: HYPERTENSION
     Dosage: UNK
     Dates: start: 20171120, end: 20190615
  16. TRASTUZUMAB. [Suspect]
     Active Substance: TRASTUZUMAB
     Dosage: 420 MILLIGRAM, Q3W
     Route: 041
     Dates: start: 20181128, end: 20181128
  17. TRASTUZUMAB. [Suspect]
     Active Substance: TRASTUZUMAB
     Dosage: ON 24/APR/2020, MOST RECENT DOSE
     Route: 041
     Dates: start: 20181219
  18. TRASTUZUMAB. [Suspect]
     Active Substance: TRASTUZUMAB
     Indication: BREAST CANCER METASTATIC
     Dosage: MOST RECENT DOSE PRIOR TO THE EVENT: 14/JUL/2017, 08/JUN/2018, 23/JUL/2018, 08/JUN/2018
     Route: 042
     Dates: start: 20170324, end: 20170324
  19. FULVESTRANT. [Suspect]
     Active Substance: FULVESTRANT
     Indication: BREAST CANCER METASTATIC
     Dosage: MOST RECENT DOSE PRIOR TO THE EVENT: 26/DEC/2018
     Route: 030
     Dates: start: 20181128
  20. DOCETAXEL. [Suspect]
     Active Substance: DOCETAXEL
     Dosage: DATE OF MOST RECENT DOSE: 23/JUL/2018
     Route: 042
     Dates: start: 20180608, end: 20180608
  21. PERTUZUMAB. [Suspect]
     Active Substance: PERTUZUMAB
     Indication: BREAST CANCER METASTATIC
     Dosage: MOST RECENT DOSE PRIOR TO THE EVENT: 14/JUL/2017, 13/DEC/2017, 23/JUL/2018
     Route: 042
     Dates: start: 20170324, end: 20170324
  22. FORTECORTIN                        /00016001/ [Concomitant]
     Active Substance: DEXAMETHASONE
     Dosage: ONGOING = NOT CHECKED
     Dates: end: 20181017
  23. PANTOPRAZOL                        /01263201/ [Concomitant]
     Active Substance: PANTOPRAZOLE
     Dosage: ONGOING = CHECKED
  24. FENISTIL [Concomitant]
     Active Substance: DIMETHINDENE
     Dosage: ONGOING = CHECKED
     Dates: start: 20170414
  25. CAL D VITA [Concomitant]
     Dosage: UNK
     Dates: start: 20170505, end: 20190615
  26. XGEVA [Concomitant]
     Active Substance: DENOSUMAB
     Dosage: UNK
     Dates: start: 20170505, end: 20180329

REACTIONS (13)
  - Dyspnoea exertional [Recovered/Resolved]
  - Flank pain [Recovered/Resolved]
  - Dysgeusia [Recovered/Resolved]
  - Pyrexia [Not Recovered/Not Resolved]
  - Paraesthesia [Recovered/Resolved]
  - Sinusitis [Recovered/Resolved]
  - Diarrhoea [Recovered/Resolved]
  - Fatigue [Recovered/Resolved]
  - Ejection fraction decreased [Recovering/Resolving]
  - Hypertension [Recovered/Resolved]
  - Polyneuropathy [Unknown]
  - Dyspnoea [Not Recovered/Not Resolved]
  - Renal pain [Recovered/Resolved]

NARRATIVE: CASE EVENT DATE: 20171030
